FAERS Safety Report 10228863 (Version 1)
Quarter: 2014Q2

REPORT INFORMATION
  Report Type: Spontaneous
  Country: US (occurrence: US)
  Receive Date: 20140610
  Receipt Date: 20140610
  Transmission Date: 20141212
  Serious: No
  Sender: FDA-Public Use
  Company Number: US-B.I. PHARMACEUTICALS,INC./RIDGEFIELD-2014-BI-24331BP

PATIENT
  Age: 69 Year
  Sex: Female
  Weight: 75 kg

DRUGS (5)
  1. MICARDIS [Suspect]
     Indication: HYPERTENSION
     Dosage: 40 MG
     Route: 048
     Dates: start: 2011, end: 201403
  2. SPIRIVA [Concomitant]
     Indication: EMPHYSEMA
     Dosage: 18 MCG
     Route: 055
     Dates: start: 2011
  3. DIAZIDE [Concomitant]
     Indication: HYPERTENSION
     Route: 048
  4. PAROXETINE [Concomitant]
     Indication: DEPRESSION
     Dosage: 20 MG
     Route: 048
  5. PRO AIR [Concomitant]
     Indication: INHALATION THERAPY
     Dosage: FORMULATION:INHALATION SOLUTION
     Route: 055

REACTIONS (1)
  - Rash erythematous [Not Recovered/Not Resolved]
